FAERS Safety Report 17019184 (Version 1)
Quarter: 2019Q4

REPORT INFORMATION
  Report Type: Other
  Country: ZA (occurrence: ZA)
  Receive Date: 20191112
  Receipt Date: 20191112
  Transmission Date: 20200122
  Serious: Yes (Other)
  Sender: FDA-Public Use
  Company Number: ZA-MACLEODS PHARMACEUTICALS US LTD-MAC2019023575

PATIENT

DRUGS (4)
  1. VIREAD [Suspect]
     Active Substance: TENOFOVIR DISOPROXIL FUMARATE
     Indication: HIV INFECTION
     Dosage: UNK, 1 COURSE OF VIREAD, TDF (TENOFOVIR DISOPROXIL FUMARATE) DURING FIRST TRIMESTER
     Route: 065
  2. ATRIPLA [Suspect]
     Active Substance: EFAVIRENZ\EMTRICITABINE\TENOFOVIR DISOPROXIL FUMARATE
     Indication: HIV INFECTION
     Dosage: UNK, 1 COURSE OF ATRIPLA, ATR (EFAVIRENZ+TENOFOVIR DISOPROXIL FUMARATE+EMTRICITABINE) DURING SECOND
     Route: 065
  3. NEVIRAPINE. [Suspect]
     Active Substance: NEVIRAPINE
     Indication: HIV INFECTION
     Dosage: UNK, 1 COURSE OF NEVIRAPINE DURING FIRST TRIMESTER
     Route: 065
  4. LAMIVUDINE. [Suspect]
     Active Substance: LAMIVUDINE
     Indication: HIV INFECTION
     Dosage: UNK, 1 COURSE OF LAMIVUDINE DURING FIRST TRIMESTER
     Route: 065

REACTIONS (1)
  - Maternal exposure during pregnancy [Unknown]
